FAERS Safety Report 4522173-2 (Version None)
Quarter: 2004Q4

REPORT INFORMATION
  Report Type: 
  Country: None (occurrence: None)
  Receive Date: 20041209
  Receipt Date: 20041130
  Transmission Date: 20050328
  Serious: Yes (Hospitalization)
  Sender: FDA-Public Use
  Company Number: GB-BRISTOL-MYERS SQUIBB COMPANY-12779955

PATIENT
  Age: 62 Year
  Sex: Female
  Weight: 82 kg

DRUGS (7)
  1. PACLITAXEL [Suspect]
     Indication: BREAST CANCER
     Route: 042
     Dates: start: 20041006, end: 20041006
  2. FRUSEMIDE [Concomitant]
     Route: 048
  3. AMLODIPINE [Concomitant]
     Route: 048
     Dates: start: 20041001
  4. DOXAZOSIN [Concomitant]
     Route: 048
  5. OMEPRAZOLE [Concomitant]
     Route: 048
     Dates: start: 20040701
  6. SERETIDE [Concomitant]
     Dosage: 2 PUFFS
     Route: 055
  7. ASPIRIN [Concomitant]

REACTIONS (1)
  - DIABETIC KETOACIDOSIS [None]
